FAERS Safety Report 4443066-5 (Version None)
Quarter: 2004Q3

REPORT INFORMATION
  Report Type: 
  Country: None (occurrence: None)
  Receive Date: 20040903
  Receipt Date: 20040628
  Transmission Date: 20050211
  Serious: Yes (Other)
  Sender: FDA-Public Use
  Company Number: 2004UW13395

PATIENT
  Age: 55 Year
  Sex: Male
  Weight: 120.6568 kg

DRUGS (10)
  1. CRESTOR [Suspect]
     Indication: BLOOD CHOLESTEROL INCREASED
     Dosage: 10 MG PO
     Route: 048
     Dates: start: 20040201
  2. PAXIL [Concomitant]
  3. NIPROMINE [Concomitant]
  4. XANAX [Concomitant]
  5. ATENOLOL [Concomitant]
  6. MAVIK [Concomitant]
  7. AVANDIA [Concomitant]
  8. ALLEGRA [Concomitant]
  9. BECONASE [Concomitant]
  10. COENZYME Q10 [Concomitant]

REACTIONS (3)
  - ARTHRALGIA [None]
  - INCREASED APPETITE [None]
  - MYALGIA [None]
